FAERS Safety Report 13290690 (Version 1)
Quarter: 2017Q1

REPORT INFORMATION
  Report Type: Spontaneous
  Country: US (occurrence: US)
  Receive Date: 20170303
  Receipt Date: 20170303
  Transmission Date: 20170428
  Serious: No
  Sender: FDA-Public Use
  Company Number: US-TEVA-744300ACC

PATIENT
  Age: 64 Year
  Sex: Male

DRUGS (11)
  1. COPAXONE [Suspect]
     Active Substance: GLATIRAMER ACETATE
     Indication: MULTIPLE SCLEROSIS
     Dosage: 20 MILLIGRAM/MILLILITERS DAILY;
     Route: 058
     Dates: start: 20150327
  2. VITAMIN D3 CAP 10000UNIT [Concomitant]
  3. MULTIVITAL [Concomitant]
  4. AMANTADINE [Concomitant]
     Active Substance: AMANTADINE
  5. COQ10 [Concomitant]
     Active Substance: UBIDECARENONE
  6. CARBAMAZEPIN [Concomitant]
     Active Substance: CARBAMAZEPINE
  7. ATORVASTATIN [Concomitant]
     Active Substance: ATORVASTATIN
  8. BACLOFEN. [Concomitant]
     Active Substance: BACLOFEN
  9. ASPIRIN-81 EC [Concomitant]
  10. OXYBUTYNIN [Concomitant]
     Active Substance: OXYBUTYNIN
  11. VITAMIN B12 TAB 1000CR [Concomitant]

REACTIONS (2)
  - Injection site erythema [Unknown]
  - Fall [Unknown]

NARRATIVE: CASE EVENT DATE: 20150327
